FAERS Safety Report 4550184-X (Version None)
Quarter: 2005Q1

REPORT INFORMATION
  Report Type: 
  Country: None (occurrence: None)
  Receive Date: 20050112
  Receipt Date: 20041222
  Transmission Date: 20050727
  Serious: Yes (Hospitalization)
  Sender: FDA-Public Use
  Company Number: AU-MERCK-0501AUS00025

PATIENT
  Sex: Male

DRUGS (4)
  1. ZOCOR [Suspect]
     Route: 048
     Dates: start: 20011201, end: 20041201
  2. ZOCOR [Suspect]
     Route: 048
     Dates: start: 20041201
  3. ASPIRIN [Concomitant]
     Route: 065
     Dates: end: 20041201
  4. ASPIRIN [Concomitant]
     Route: 065
     Dates: start: 20041201

REACTIONS (4)
  - ASTHENIA [None]
  - DIVERTICULITIS [None]
  - DIZZINESS [None]
  - TREATMENT NONCOMPLIANCE [None]
